FAERS Safety Report 20756787 (Version 2)
Quarter: 2022Q2

REPORT INFORMATION
  Report Type: Report from Study
  Country: US (occurrence: US)
  Receive Date: 20220427
  Receipt Date: 20220427
  Transmission Date: 20220721
  Serious: Yes (Death)
  Sender: FDA-Public Use
  Company Number: US-PFIZER INC-202200527670

PATIENT
  Age: 37 Year
  Sex: Female
  Weight: 95.55 kg

DRUGS (6)
  1. TOZINAMERAN [Suspect]
     Active Substance: TOZINAMERAN
     Indication: COVID-19 immunisation
     Dosage: DOSE 4, SINGLE
     Route: 030
     Dates: start: 20210118, end: 20210118
  2. XANAX [Suspect]
     Active Substance: ALPRAZOLAM
     Indication: Anxiety
     Dosage: 0.25 MG, PRN
     Route: 048
     Dates: start: 2019
  3. EFFEXOR XR [Suspect]
     Active Substance: VENLAFAXINE HYDROCHLORIDE
     Indication: Depression
     Dosage: 150 MG, QD
     Route: 048
     Dates: start: 2020
  4. WELLBUTRIN [Suspect]
     Active Substance: BUPROPION HYDROCHLORIDE
     Indication: Depression
     Dosage: 300 MG, QD
     Route: 048
     Dates: start: 2017, end: 20211026
  5. DESYREL [Suspect]
     Active Substance: TRAZODONE HYDROCHLORIDE
     Indication: Insomnia
     Dosage: 50 MG, HS
     Route: 048
     Dates: start: 2020
  6. FLEXERIL [Suspect]
     Active Substance: CYCLOBENZAPRINE HYDROCHLORIDE
     Indication: Neck pain
     Dosage: 10 MG, PRN
     Route: 048
     Dates: start: 2018

REACTIONS (3)
  - Completed suicide [Fatal]
  - Gun shot wound [Fatal]
  - Head injury [Fatal]

NARRATIVE: CASE EVENT DATE: 20220319
